FAERS Safety Report 7830292-8 (Version None)
Quarter: 2011Q4

REPORT INFORMATION
  Report Type: 
  Country: None (occurrence: None)
  Receive Date: 20111019
  Receipt Date: 20111006
  Transmission Date: 20120403
  Serious: Yes (Other)
  Sender: FDA-Public Use
  Company Number: 1000024667

PATIENT
  Age: 41 Year
  Sex: Female

DRUGS (3)
  1. ESCITALOPRAM [Suspect]
     Dosage: 2 BOXES (ONCE)
  2. LEXOMIL (BROMAZEPAM) [Suspect]
     Dosage: (ONCE)
  3. VOLTAREN [Suspect]
     Dosage: (ONCE)

REACTIONS (3)
  - INCORRECT DOSE ADMINISTERED [None]
  - SUICIDE ATTEMPT [None]
  - EYE DISORDER [None]
